FAERS Safety Report 16573373 (Version 3)
Quarter: 2019Q3

REPORT INFORMATION
  Report Type: Spontaneous
  Country: FR (occurrence: FR)
  Receive Date: 20190715
  Receipt Date: 20190805
  Transmission Date: 20191004
  Serious: Yes (Death, Life-Threatening)
  Sender: FDA-Public Use
  Company Number: FR-GLAXOSMITHKLINE-FR2019126581

PATIENT
  Age: 79 Year
  Sex: Male
  Weight: 80 kg

DRUGS (3)
  1. CALCIPARINE [Interacting]
     Active Substance: HEPARIN CALCIUM
     Indication: THROMBOSIS PROPHYLAXIS
     Dosage: 1 DF, QD (0.6 TWICE DAILY)
     Route: 048
     Dates: start: 20190620, end: 20190624
  2. VOLTARENE (DICLOFENAC SODIUM) [Suspect]
     Active Substance: DICLOFENAC SODIUM
     Indication: ANALGESIC THERAPY
     Dosage: 1 DF, QD
     Route: 048
     Dates: start: 20190620, end: 20190624
  3. CALCIPARINE [Interacting]
     Active Substance: HEPARIN CALCIUM
     Indication: THROMBOSIS PROPHYLAXIS
     Dosage: 2 DF, QD (0.6 ML TWICE DAY)
     Route: 058
     Dates: start: 20190619, end: 20190624

REACTIONS (2)
  - Drug interaction [Unknown]
  - Post procedural haematoma [Fatal]

NARRATIVE: CASE EVENT DATE: 201906
